FAERS Safety Report 10801562 (Version 1)
Quarter: 2015Q1

REPORT INFORMATION
  Report Type: Spontaneous
  Country: CA (occurrence: CA)
  Receive Date: 20150217
  Receipt Date: 20150217
  Transmission Date: 20150721
  Serious: Yes (Other)
  Sender: FDA-Public Use
  Company Number: CA-009507513-1502CAN006110

PATIENT
  Age: 46 Year
  Sex: Male

DRUGS (2)
  1. NASONEX [Suspect]
     Active Substance: MOMETASONE FUROATE
     Indication: CHRONIC SINUSITIS
  2. NASONEX [Suspect]
     Active Substance: MOMETASONE FUROATE
     Indication: HYPERSENSITIVITY
     Route: 045

REACTIONS (1)
  - Meningioma [Not Recovered/Not Resolved]
